FAERS Safety Report 9872160 (Version 2)
Quarter: 2014Q1

REPORT INFORMATION
  Report Type: Spontaneous
  Country: None (occurrence: US)
  Receive Date: 20140205
  Receipt Date: 20140205
  Transmission Date: 20141002
  Serious: No
  Sender: FDA-Public Use
  Company Number: US-ALLERGAN-1306563US

PATIENT
  Age: 57 Year
  Sex: Female

DRUGS (2)
  1. BOTOX [Suspect]
     Indication: FACIAL SPASM
     Dosage: UNK, SINGLE
     Route: 030
     Dates: start: 20130410, end: 20130410
  2. SALINE SOLUTION [Concomitant]
     Indication: DRY EYE
     Dosage: UNK, BID
     Route: 047

REACTIONS (4)
  - Abnormal sensation in eye [Unknown]
  - Photophobia [Unknown]
  - Lacrimation increased [Unknown]
  - Vision blurred [Unknown]
